FAERS Safety Report 22313138 (Version 1)
Quarter: 2023Q2

REPORT INFORMATION
  Report Type: Spontaneous
  Country: US (occurrence: None)
  Receive Date: 20230510
  Receipt Date: 20230510
  Transmission Date: 20230722
  Serious: No
  Sender: FDA-Public Use
  Company Number: None

PATIENT
  Age: 62 Year
  Sex: Female
  Weight: 58.2 kg

DRUGS (13)
  1. VERZENIO [Suspect]
     Active Substance: ABEMACICLIB
     Indication: Breast cancer female
     Dosage: FREQUENCY : TWICE A DAY;?
     Route: 048
     Dates: start: 20221102
  2. ANASTROZOLE [Concomitant]
     Active Substance: ANASTROZOLE
  3. VITAMIN D3 [Concomitant]
     Active Substance: CHOLECALCIFEROL
  4. OMEGA 3 [Concomitant]
     Active Substance: CAPSAICIN
  5. POTASSIUM [Concomitant]
     Active Substance: POTASSIUM
  6. ZINC [Concomitant]
     Active Substance: ZINC
  7. MAGNESIUM [Concomitant]
     Active Substance: MAGNESIUM
  8. VITAMIN C [Concomitant]
     Active Substance: ASCORBIC ACID
  9. ZOMETA [Concomitant]
     Active Substance: ZOLEDRONIC ACID
  10. FULVESTRANT [Concomitant]
     Active Substance: FULVESTRANT
  11. ALPRAZOLAM [Concomitant]
     Active Substance: ALPRAZOLAM
  12. GLYCINE POWDER [Concomitant]
  13. CRANBERRY [Concomitant]
     Active Substance: CRANBERRY

REACTIONS (1)
  - Cystitis [None]
